FAERS Safety Report 23691393 (Version 2)
Quarter: 2024Q2

REPORT INFORMATION
  Report Type: Spontaneous
  Country: US (occurrence: None)
  Receive Date: 20240401
  Receipt Date: 20240408
  Transmission Date: 20240716
  Serious: Yes (Hospitalization)
  Sender: FDA-Public Use
  Company Number: US-ROCHE-3530177

PATIENT
  Sex: Female
  Weight: 131.66 kg

DRUGS (1)
  1. OCREVUS [Suspect]
     Active Substance: OCRELIZUMAB
     Indication: Relapsing-remitting multiple sclerosis
     Route: 042

REACTIONS (21)
  - Atrial fibrillation [Not Recovered/Not Resolved]
  - Sinus arrhythmia [Unknown]
  - COVID-19 [Recovered/Resolved]
  - COVID-19 pneumonia [Recovered/Resolved]
  - Gait inability [Recovered/Resolved]
  - Oxygen saturation decreased [Recovered/Resolved]
  - Pain [Unknown]
  - Bladder spasm [Unknown]
  - Nausea [Unknown]
  - Oropharyngeal pain [Not Recovered/Not Resolved]
  - Dry mouth [Unknown]
  - Rhinorrhoea [Unknown]
  - Nasal congestion [Not Recovered/Not Resolved]
  - Nasopharyngitis [Not Recovered/Not Resolved]
  - Chills [Not Recovered/Not Resolved]
  - Secretion discharge [Unknown]
  - Pyrexia [Not Recovered/Not Resolved]
  - Brain fog [Unknown]
  - Inappropriate schedule of product administration [Unknown]
  - Malaise [Unknown]
  - Drug hypersensitivity [Recovered/Resolved]

NARRATIVE: CASE EVENT DATE: 20210101
